FAERS Safety Report 19668525 (Version 1)
Quarter: 2021Q3

REPORT INFORMATION
  Report Type: Spontaneous
  Country: SI (occurrence: SI)
  Receive Date: 20210806
  Receipt Date: 20210806
  Transmission Date: 20211014
  Serious: Yes (Life-Threatening, Hospitalization)
  Sender: FDA-Public Use
  Company Number: SI-PFIZER INC-202100948158

PATIENT
  Age: 71 Year
  Sex: Male

DRUGS (11)
  1. NOLPAZA [Concomitant]
     Active Substance: PANTOPRAZOLE SODIUM
     Dosage: IN THE MORNING ON AN EMPTY STOMACH
     Route: 048
  2. AMLOPIN [AMLODIPINE BESILATE] [Concomitant]
     Active Substance: AMLODIPINE BESYLATE
     Dosage: IN THE MORNING
     Route: 048
  3. MEDROL [Suspect]
     Active Substance: METHYLPREDNISOLONE
     Indication: HYPERSENSITIVITY PNEUMONITIS
     Dosage: 32 MG EVERY OTHER DAY
     Route: 048
     Dates: start: 20210422
  4. ATACAND [Concomitant]
     Active Substance: CANDESARTAN CILEXETIL
     Dosage: IN THE MORNING
     Route: 048
  5. PLIVIT D3 [Concomitant]
     Active Substance: CHOLECALCIFEROL
     Dosage: 10GTT/DAY
     Route: 048
  6. OMNIC OCAS [Concomitant]
     Active Substance: TAMSULOSIN HYDROCHLORIDE
     Dosage: IN THE EVENING
     Route: 048
  7. BYOL [Concomitant]
     Active Substance: BISOPROLOL
     Dosage: IN THE MORNING
     Route: 048
  8. MEDROL [Suspect]
     Active Substance: METHYLPREDNISOLONE
     Dosage: 32 MG EVERY OTHER DAY
     Route: 048
     Dates: start: 20210509
  9. MEDROL [Suspect]
     Active Substance: METHYLPREDNISOLONE
     Dosage: 16 MG EVERY OTHER DAY
     Route: 048
     Dates: start: 20210608
  10. CALCIUM CARBONATE. [Concomitant]
     Active Substance: CALCIUM CARBONATE
     Dosage: 1 TBL BEFORE LUNCH
     Route: 048
  11. VENTOLIN [Concomitant]
     Active Substance: ALBUTEROL SULFATE
     Indication: DYSPNOEA
     Dosage: AS NEEDED WITH HEAVY BREATHING
     Route: 055

REACTIONS (2)
  - Pneumocystis jirovecii infection [Unknown]
  - Off label use [Unknown]

NARRATIVE: CASE EVENT DATE: 20210422
